FAERS Safety Report 7671301-9 (Version None)
Quarter: 2011Q3

REPORT INFORMATION
  Report Type: 
  Country: None (occurrence: None)
  Receive Date: 20110803
  Receipt Date: 20110720
  Transmission Date: 20111222
  Serious: Yes (Other)
  Sender: FDA-Public Use
  Company Number: 2011SP034331

PATIENT
  Age: 46 Year
  Sex: Female

DRUGS (2)
  1. IMPLANON [Suspect]
     Indication: PRODUCT USED FOR UNKNOWN INDICATION
     Dosage: 1DF; 1DF
     Dates: start: 20070101, end: 20091017
  2. IMPLANON [Suspect]
     Indication: PRODUCT USED FOR UNKNOWN INDICATION
     Dosage: 1DF; 1DF
     Dates: start: 20091017

REACTIONS (3)
  - VAGINAL HAEMORRHAGE [None]
  - METRORRHAGIA [None]
  - ENDOMETRIAL CANCER [None]
